FAERS Safety Report 19126128 (Version 1)
Quarter: 2021Q2

REPORT INFORMATION
  Report Type: Spontaneous
  Country: US (occurrence: US)
  Receive Date: 20210412
  Receipt Date: 20210412
  Transmission Date: 20210717
  Serious: Yes (Other)
  Sender: FDA-Public Use
  Company Number: None

PATIENT
  Age: 36 Year
  Sex: Male
  Weight: 84.6 kg

DRUGS (3)
  1. FISH OIL [Concomitant]
     Active Substance: FISH OIL
  2. PERFLUTREN. [Concomitant]
     Active Substance: PERFLUTREN
  3. MODAFINIL 200MG TAB [Suspect]
     Active Substance: MODAFINIL
     Indication: SOMNOLENCE
     Dosage: ?          QUANTITY:1 TABLET(S);?
     Route: 048
     Dates: start: 20210320, end: 20210408

REACTIONS (4)
  - Trigeminal neuralgia [None]
  - Product substitution issue [None]
  - Headache [None]
  - Polyneuropathy [None]

NARRATIVE: CASE EVENT DATE: 20210320
